FAERS Safety Report 18372479 (Version 1)
Quarter: 2020Q4

REPORT INFORMATION
  Report Type: Spontaneous
  Country: DE (occurrence: DE)
  Receive Date: 20201012
  Receipt Date: 20201012
  Transmission Date: 20210114
  Serious: Yes (Hospitalization)
  Sender: FDA-Public Use
  Company Number: DE-PFIZER INC-2020389493

PATIENT
  Sex: Female
  Weight: 80 kg

DRUGS (4)
  1. AZATHIOPRINE [AZATHIOPRINE SODIUM] [Concomitant]
     Active Substance: AZATHIOPRINE SODIUM
  2. KREON [Concomitant]
     Active Substance: PANCRELIPASE
     Dosage: UNK
  3. DEKRISTOL [Concomitant]
     Active Substance: CHOLECALCIFEROL
     Dosage: UNK
  4. ZESSLY [Suspect]
     Active Substance: INFLIXIMAB
     Dosage: 400 MG
     Route: 065
     Dates: start: 20190916

REACTIONS (1)
  - Ileal stenosis [Unknown]

NARRATIVE: CASE EVENT DATE: 20191009
